FAERS Safety Report 25448795 (Version 1)
Quarter: 2025Q2

REPORT INFORMATION
  Report Type: Spontaneous
  Country: HU (occurrence: HU)
  Receive Date: 20250618
  Receipt Date: 20250618
  Transmission Date: 20250716
  Serious: Yes (Hospitalization, Other)
  Sender: BRISTOL-MYERS SQUIBB COMPANY
  Company Number: HU-BRISTOL-MYERS SQUIBB COMPANY-2025-085840

PATIENT
  Age: 52 Year
  Sex: Male

DRUGS (6)
  1. ELIQUIS [Suspect]
     Active Substance: APIXABAN
     Indication: Atrial fibrillation
  2. SAXENDA [Concomitant]
     Active Substance: LIRAGLUTIDE
     Indication: Product used for unknown indication
  3. PROPAFENONE HCL [Concomitant]
     Active Substance: PROPAFENONE HYDROCHLORIDE
     Indication: Product used for unknown indication
  4. DALNESSA [Concomitant]
     Indication: Product used for unknown indication
  5. METOPROLOL SUCCINATE [Concomitant]
     Active Substance: METOPROLOL SUCCINATE
     Indication: Product used for unknown indication
  6. CARDURA [Concomitant]
     Active Substance: DOXAZOSIN MESYLATE
     Indication: Product used for unknown indication

REACTIONS (2)
  - Speech disorder [Recovering/Resolving]
  - Cerebral artery occlusion [Recovering/Resolving]

NARRATIVE: CASE EVENT DATE: 20250611
